FAERS Safety Report 10272545 (Version 1)
Quarter: 2014Q2

REPORT INFORMATION
  Report Type: Spontaneous
  Country: CZ (occurrence: None)
  Receive Date: 20140630
  Receipt Date: 20140630
  Transmission Date: 20141212
  Serious: Yes (Death, Other)
  Sender: FDA-Public Use
  Company Number: 2014CVI00008

PATIENT
  Age: 67 Year
  Sex: Female

DRUGS (8)
  1. ZINACEF (CEFUROXIME) INJECTION [Suspect]
     Indication: ANTIBIOTIC PROPHYLAXIS
     Route: 051
     Dates: start: 20140605, end: 20140605
  2. ZALDIAR [Concomitant]
  3. CITALOPRAM HYDROBROMIDE [Concomitant]
  4. METFORMIN HYDROCHLORIDE [Concomitant]
  5. BISOPROLOL [Concomitant]
  6. PENTAZOCINE HYDROCHLORIDE [Concomitant]
  7. ESOMEPRAZOLE [Concomitant]
  8. TELMISARTAN [Concomitant]

REACTIONS (10)
  - Coagulopathy [None]
  - Loss of consciousness [None]
  - Diarrhoea [None]
  - Activated partial thromboplastin time prolonged [None]
  - Fibrin D dimer increased [None]
  - Haemorrhage [None]
  - Troponin increased [None]
  - Anaphylactic shock [None]
  - Multi-organ failure [None]
  - Gastrointestinal disorder [None]
